FAERS Safety Report 24931630 (Version 1)
Quarter: 2025Q1

REPORT INFORMATION
  Report Type: Spontaneous
  Country: DE (occurrence: DE)
  Receive Date: 20250205
  Receipt Date: 20250205
  Transmission Date: 20250409
  Serious: Yes (Hospitalization, Other)
  Sender: JOHNSON AND JOHNSON
  Company Number: DE-JNJFOC-20241018000

PATIENT
  Age: 79 Year
  Sex: Female

DRUGS (3)
  1. RYBREVANT [Suspect]
     Active Substance: AMIVANTAMAB-VMJW
     Indication: Non-small cell lung cancer
     Dates: start: 20240905, end: 20241028
  2. PEMETREXED [Concomitant]
     Active Substance: PEMETREXED
     Dates: start: 20240905, end: 20241028
  3. CARBOPLATIN [Concomitant]
     Active Substance: CARBOPLATIN
     Dates: start: 20240905, end: 20241028

REACTIONS (5)
  - Pulmonary embolism [Recovering/Resolving]
  - Embolism venous [Recovered/Resolved]
  - Atrial fibrillation [Not Recovered/Not Resolved]
  - Aortic aneurysm [Not Recovered/Not Resolved]
  - Hypoalbuminaemia [Unknown]

NARRATIVE: CASE EVENT DATE: 20240924
